FAERS Safety Report 5006653-1 (Version None)
Quarter: 2006Q2

REPORT INFORMATION
  Report Type: 
  Country: None (occurrence: None)
  Receive Date: 20060516
  Receipt Date: 20060503
  Transmission Date: 20061013
  Serious: No
  Sender: FDA-Public Use
  Company Number: 2006-142251-NL

PATIENT
  Sex: Female

DRUGS (1)
  1. MIRTAZAPINE [Suspect]
     Dosage: 7.5 MG

REACTIONS (3)
  - DRY EYE [None]
  - HEART RATE IRREGULAR [None]
  - NASAL DRYNESS [None]
